FAERS Safety Report 19268056 (Version 3)
Quarter: 2021Q3

REPORT INFORMATION
  Report Type: Spontaneous
  Country: US (occurrence: US)
  Receive Date: 20210518
  Receipt Date: 20210815
  Transmission Date: 20211014
  Serious: Yes (Death, Hospitalization)
  Sender: FDA-Public Use
  Company Number: US-JNJFOC-20210518472

PATIENT
  Age: 62 Year
  Sex: Female
  Weight: 105 kg

DRUGS (1)
  1. OPSUMIT [Suspect]
     Active Substance: MACITENTAN
     Indication: PULMONARY ARTERIAL HYPERTENSION
     Route: 048
     Dates: start: 20210326, end: 20210412

REACTIONS (2)
  - Pulmonary hypertension [Fatal]
  - Mitral valve disease mixed [Fatal]
